FAERS Safety Report 8256755-1 (Version None)
Quarter: 2012Q2

REPORT INFORMATION
  Report Type: 
  Country: None (occurrence: None)
  Receive Date: 20120403
  Receipt Date: 20120330
  Transmission Date: 20120825
  Serious: No
  Sender: FDA-Public Use
  Company Number: JP-PFIZER INC-2012073922

PATIENT
  Age: 46 Year
  Sex: Female

DRUGS (3)
  1. ZOLPIDEM [Concomitant]
     Dosage: 10 MG/DAY
     Route: 048
  2. MEPTIN [Concomitant]
     Indication: ASTHMA
     Dosage: UNK
     Dates: start: 20120301, end: 20120301
  3. ZOLOFT [Suspect]
     Dosage: 50 MG, 1X/DAY
     Route: 048

REACTIONS (2)
  - AMNESIA [None]
  - SOMNOLENCE [None]
